FAERS Safety Report 7960390-X (Version None)
Quarter: 2011Q4

REPORT INFORMATION
  Report Type: 
  Country: None (occurrence: None)
  Receive Date: 20111206
  Receipt Date: 20111128
  Transmission Date: 20120403
  Serious: Yes (Death, Life-Threatening)
  Sender: FDA-Public Use
  Company Number: JP-CELGENEUS-087-50794-11120396

PATIENT
  Sex: Female
  Weight: 48 kg

DRUGS (19)
  1. TRANEXAMIC ACID [Concomitant]
     Route: 065
     Dates: start: 20110913
  2. CEFEPIME DIHYDROCHLORIDE HYDRATE [Concomitant]
     Route: 065
     Dates: start: 20110906, end: 20110908
  3. ADONA [Concomitant]
     Route: 065
     Dates: start: 20110913
  4. MIYA BM [Concomitant]
     Route: 065
     Dates: start: 20110913
  5. ANPLAG [Concomitant]
     Route: 065
     Dates: end: 20110829
  6. EXJADE [Concomitant]
     Route: 065
     Dates: start: 20111027
  7. PREDNISOLONE [Concomitant]
     Route: 065
     Dates: end: 20110912
  8. RED BLOOD CELLS [Concomitant]
     Route: 065
  9. HOKUNALIN [Concomitant]
     Route: 065
  10. FUNGUARD [Concomitant]
     Route: 065
     Dates: start: 20110920, end: 20111003
  11. SULFAMETHOXAZOLE AND TRIMETHOPRIM [Concomitant]
     Route: 065
     Dates: start: 20110826
  12. LASIX [Concomitant]
     Route: 065
     Dates: start: 20110928
  13. PLATELETS [Concomitant]
     Route: 065
  14. ADALAT [Concomitant]
     Route: 065
  15. RABEPRAZOLE SODIUM [Concomitant]
     Route: 065
  16. BUP-4 [Concomitant]
     Route: 065
  17. UNASYN [Concomitant]
     Route: 065
     Dates: start: 20110920, end: 20111003
  18. VIDAZA [Suspect]
     Indication: MYELODYSPLASTIC SYNDROME
     Dosage: 75 MILLIGRAM/SQ. METER
     Route: 041
     Dates: start: 20110825, end: 20110831
  19. LOSARTAN POTASSIUM AND HYDROCHLOROTHIAZIDE [Concomitant]
     Route: 065
     Dates: end: 20110919

REACTIONS (2)
  - MYELODYSPLASTIC SYNDROME [None]
  - PNEUMONIA [None]
